FAERS Safety Report 4753176-0 (Version None)
Quarter: 2005Q3

REPORT INFORMATION
  Report Type: 
  Country: None (occurrence: None)
  Receive Date: 20050823
  Receipt Date: 20050810
  Transmission Date: 20060218
  Serious: Yes (Hospitalization, Other)
  Sender: FDA-Public Use
  Company Number: 200511380BCC

PATIENT
  Age: 58 Year
  Sex: Male
  Weight: 113.3993 kg

DRUGS (12)
  1. ORIGINAL ALKA-SELTZER TABLETS [Suspect]
     Indication: DYSPEPSIA
     Dosage: 5200 MG, TOTAL DAILY, ORAL
     Route: 048
     Dates: start: 20050301
  2. ASPIRIN [Suspect]
     Dosage: 81 MG, QD, ORAL
     Route: 048
  3. METFORMIN [Concomitant]
  4. SIMVASTATIN [Concomitant]
  5. OMEPRAZOLE [Concomitant]
  6. GENERIC FERROUS SULFATE [Concomitant]
  7. FOLIC ACID [Concomitant]
  8. PRINIVIL [Concomitant]
  9. COMBIVENT [Concomitant]
  10. AZMACORT [Concomitant]
  11. LASIX [Concomitant]
  12. ALCOHOL [Concomitant]

REACTIONS (4)
  - DYSPNOEA [None]
  - GASTRIC ULCER [None]
  - GASTRITIS [None]
  - RECTAL HAEMORRHAGE [None]
